FAERS Safety Report 7512615-2 (Version None)
Quarter: 2011Q2

REPORT INFORMATION
  Report Type: 
  Country: None (occurrence: None)
  Receive Date: 20110531
  Receipt Date: 20110523
  Transmission Date: 20111010
  Serious: Yes (Life-Threatening)
  Sender: FDA-Public Use
  Company Number: ES-ROCHE-779578

PATIENT

DRUGS (1)
  1. CAPECITABINE [Suspect]
     Dosage: DOSE-COLORECTAL CANCER:1250 MG/M2/D AND BREAST CANCER: SAME OR 800 MG/M2/D (CONTINUOUS REGIMEN)
     Route: 065

REACTIONS (2)
  - MUCOSAL INFLAMMATION [None]
  - BONE MARROW FAILURE [None]
